FAERS Safety Report 14220639 (Version 3)
Quarter: 2017Q4

REPORT INFORMATION
  Report Type: Report from Study
  Country: US (occurrence: US)
  Receive Date: 20171124
  Receipt Date: 20171228
  Transmission Date: 20180321
  Serious: Yes (Hospitalization)
  Sender: FDA-Public Use
  Company Number: US-PFIZER INC-2017497960

PATIENT
  Age: 70 Year
  Sex: Male
  Weight: 45.17 kg

DRUGS (10)
  1. ATIVAN [Suspect]
     Active Substance: LORAZEPAM
     Indication: INFUSION RELATED REACTION
     Dosage: 0.5 MG, ONE TIME
     Route: 042
     Dates: start: 20171114, end: 20171114
  2. HYDROCODONE [Concomitant]
     Active Substance: HYDROCODONE
     Indication: PAIN
     Dosage: 325 MG, AS NEEDED
     Route: 048
     Dates: start: 20171002
  3. AVELUMAB [Suspect]
     Active Substance: AVELUMAB
     Indication: RENAL CELL CARCINOMA
     Dosage: 451 MG, EVERY 2 WEEKS
     Route: 042
     Dates: start: 20171003, end: 20171114
  4. LORTAB /00917501/ [Concomitant]
     Active Substance: LORATADINE
     Indication: PAIN
     Dosage: 300 MG, AS NEEDED
     Route: 048
     Dates: start: 20170901
  5. METHYLPREDNISOLONE. [Suspect]
     Active Substance: METHYLPREDNISOLONE
     Indication: INFUSION RELATED REACTION
     Dosage: 2 MG, ONE TIME
     Route: 042
     Dates: start: 20171114, end: 20171114
  6. INLYTA [Suspect]
     Active Substance: AXITINIB
     Indication: RENAL CELL CARCINOMA
     Dosage: 5 MG, TWICE DAILY, CONTINUOUS
     Route: 048
     Dates: start: 20171003, end: 20171114
  7. LISINOPRIL. [Concomitant]
     Active Substance: LISINOPRIL
     Indication: HYPERTENSION
     Dosage: 5 MG, DAILY
     Route: 048
     Dates: start: 20171031
  8. MORPHINE SULFATE. [Suspect]
     Active Substance: MORPHINE SULFATE
     Indication: INFUSION RELATED REACTION
     Dosage: 2 MG, ONE TIME
     Route: 042
     Dates: start: 20171114, end: 20171114
  9. FAMOTIDINE. [Suspect]
     Active Substance: FAMOTIDINE
     Indication: INFUSION RELATED REACTION
     Dosage: 20 MG, ONE TIME
     Route: 042
     Dates: start: 20171114, end: 20171114
  10. DECADRON [Concomitant]
     Active Substance: DEXAMETHASONE
     Indication: CACHEXIA
     Dosage: 2 MG, 2X/DAY
     Route: 048
     Dates: start: 20171017

REACTIONS (2)
  - Ataxia [Recovered/Resolved]
  - Altered state of consciousness [Recovered/Resolved]

NARRATIVE: CASE EVENT DATE: 20171114
